FAERS Safety Report 15645909 (Version 2)
Quarter: 2019Q1

REPORT INFORMATION
  Report Type: Spontaneous
  Country: US (occurrence: US)
  Receive Date: 20181121
  Receipt Date: 20190108
  Transmission Date: 20190417
  Serious: No
  Sender: FDA-Public Use
  Company Number: US-ASTRAZENECA-2018SF41060

PATIENT
  Age: 22056 Day
  Sex: Male
  Weight: 81.6 kg

DRUGS (9)
  1. DULERA [Concomitant]
     Active Substance: FORMOTEROL FUMARATE DIHYDRATE\MOMETASONE FUROATE
  2. IPRATROPIUM BROMIDE. [Concomitant]
     Active Substance: IPRATROPIUM BROMIDE
  3. PREDNISONE. [Concomitant]
     Active Substance: PREDNISONE
  4. FASENRA [Suspect]
     Active Substance: BENRALIZUMAB
     Indication: ASTHMA
     Dosage: 30 MG, EVERY FOUR WEEKS, FASENRA DOSING WEEKS 0, 4, 8 FOLLOWED BY EVERY 8 WEEKS THEREAFTER.
     Route: 058
     Dates: start: 20181008
  5. ZAFIRLUKAST. [Concomitant]
     Active Substance: ZAFIRLUKAST
  6. ADVAIR HFA [Concomitant]
     Active Substance: FLUTICASONE PROPIONATE\SALMETEROL XINAFOATE
  7. ALBUTEROL SULFATE. [Concomitant]
     Active Substance: ALBUTEROL SULFATE
  8. FLUZONE QUAAD [Concomitant]
  9. THEOPHYLLINE [Concomitant]
     Active Substance: THEOPHYLLINE ANHYDROUS

REACTIONS (3)
  - Dyspnoea [Recovered/Resolved]
  - Insomnia [Recovered/Resolved]
  - Asthma [Unknown]

NARRATIVE: CASE EVENT DATE: 20181008
